FAERS Safety Report 22799545 (Version 2)
Quarter: 2024Q1

REPORT INFORMATION
  Report Type: Spontaneous
  Country: US (occurrence: US)
  Receive Date: 20230808
  Receipt Date: 20240301
  Transmission Date: 20240410
  Serious: No
  Sender: FDA-Public Use
  Company Number: US-HORIZON THERAPEUTICS-HZN-2023-003850

PATIENT

DRUGS (5)
  1. TEPEZZA [Suspect]
     Active Substance: TEPROTUMUMAB-TRBW
     Indication: Endocrine ophthalmopathy
     Dosage: 913 MG, EVERY 3 WEEKS X 2 VIALS
     Route: 042
     Dates: start: 20230518
  2. TEPEZZA [Suspect]
     Active Substance: TEPROTUMUMAB-TRBW
     Dosage: 1808 MG, EVERY 3 WEEKS X 4 VIALS
     Route: 042
     Dates: start: 20230608
  3. TEPEZZA [Suspect]
     Active Substance: TEPROTUMUMAB-TRBW
     Dosage: 1802 MG, EVERY 3 WEEKS X 4 VIALS
     Route: 042
     Dates: start: 20230629
  4. TEPEZZA [Suspect]
     Active Substance: TEPROTUMUMAB-TRBW
     Dosage: 1790 MG, EVERY 3 WEEKS X 4 VIALS
     Route: 042
     Dates: start: 20230720
  5. TEPEZZA [Suspect]
     Active Substance: TEPROTUMUMAB-TRBW
     Dosage: SEVENTH INFUSION
     Route: 042
     Dates: start: 2023

REACTIONS (9)
  - Nausea [Unknown]
  - Headache [Unknown]
  - Fatigue [Unknown]
  - Muscle spasms [Not Recovered/Not Resolved]
  - Tinnitus [Unknown]
  - Hypoacusis [Unknown]
  - Alopecia [Unknown]
  - Diarrhoea [Unknown]
  - Eye pruritus [Unknown]

NARRATIVE: CASE EVENT DATE: 20230101
